FAERS Safety Report 24082811 (Version 1)
Quarter: 2024Q3

REPORT INFORMATION
  Report Type: Spontaneous
  Country: US (occurrence: US)
  Receive Date: 20240712
  Receipt Date: 20240712
  Transmission Date: 20241016
  Serious: No
  Sender: SANOFI AVENTIS
  Company Number: US-SA-SAC20240709000462

PATIENT
  Sex: Female
  Weight: 58 kg

DRUGS (14)
  1. DUPIXENT [Suspect]
     Active Substance: DUPILUMAB
     Indication: Psoriasis
     Dosage: 1DF, QOW
     Route: 058
  2. OTEZLA [Concomitant]
     Active Substance: APREMILAST
  3. METOPROLOL SUCCINATE [Concomitant]
     Active Substance: METOPROLOL SUCCINATE
  4. TRAVATAN Z [Concomitant]
     Active Substance: TRAVOPROST
  5. LIDOCAINE [Concomitant]
     Active Substance: LIDOCAINE
  6. ZOLOFT [Concomitant]
     Active Substance: SERTRALINE HYDROCHLORIDE
  7. TRIAZOLAM [Concomitant]
     Active Substance: TRIAZOLAM
  8. PLAVIX [Concomitant]
     Active Substance: CLOPIDOGREL BISULFATE
  9. FLUCONAZOLE [Concomitant]
     Active Substance: FLUCONAZOLE
  10. GEMTESA [Concomitant]
     Active Substance: VIBEGRON
  11. TOLTERODINE TARTRATE [Concomitant]
     Active Substance: TOLTERODINE TARTRATE
  12. VITAMIN D3 [Concomitant]
     Active Substance: CHOLECALCIFEROL
  13. OTEZLA [Concomitant]
     Active Substance: APREMILAST
  14. HERBALS\TURMERIC [Concomitant]
     Active Substance: HERBALS\TURMERIC

REACTIONS (3)
  - Headache [Unknown]
  - Pruritus [Unknown]
  - Product use in unapproved indication [Unknown]
